FAERS Safety Report 14940281 (Version 2)
Quarter: 2018Q3

REPORT INFORMATION
  Report Type: Report from Study
  Country: CA (occurrence: CA)
  Receive Date: 20180525
  Receipt Date: 20180831
  Transmission Date: 20181010
  Serious: No
  Sender: FDA-Public Use
  Company Number: CA-SA-2018SA016007

PATIENT
  Age: 29 Year
  Sex: Male

DRUGS (8)
  1. HUMALOG [Concomitant]
     Active Substance: INSULIN LISPRO
     Indication: DIABETES MELLITUS
     Dosage: UNK UNK,PRN
     Route: 058
  2. METHYLPREDNISOLONE. [Concomitant]
     Active Substance: METHYLPREDNISOLONE
     Dosage: 100 MG,UNK
     Route: 042
     Dates: start: 20180117, end: 20180117
  3. PARACETAMOL [Concomitant]
     Active Substance: ACETAMINOPHEN
     Indication: PREMEDICATION
     Dosage: 1000 MG,UNK
     Route: 048
     Dates: start: 20180115, end: 20180117
  4. ALEMTUZUMAB [Suspect]
     Active Substance: ALEMTUZUMAB
     Indication: RELAPSING-REMITTING MULTIPLE SCLEROSIS
     Dosage: 12 MG,QD
     Route: 041
     Dates: start: 20180115, end: 20180117
  5. METHYLPREDNISOLONE. [Concomitant]
     Active Substance: METHYLPREDNISOLONE
     Indication: PREMEDICATION
     Dosage: 1 G,UNK
     Route: 042
     Dates: start: 20180115, end: 20180116
  6. REACTINE [CETIRIZINE HYDROCHLORIDE] [Concomitant]
     Active Substance: CETIRIZINE HYDROCHLORIDE
     Indication: PREMEDICATION
     Dosage: 10 MG,UNK
     Route: 048
     Dates: start: 20180115, end: 20180117
  7. ACICLOVIR [Concomitant]
     Active Substance: ACYCLOVIR
     Indication: PREMEDICATION
     Dosage: 200 MG,BID
     Route: 048
     Dates: start: 20180115
  8. RANITIDINE. [Concomitant]
     Active Substance: RANITIDINE
     Indication: PREMEDICATION
     Dosage: 150 MG,UNK
     Route: 048
     Dates: start: 20180115, end: 20180117

REACTIONS (13)
  - Blood creatinine increased [Not Recovered/Not Resolved]
  - Flushing [Recovered/Resolved]
  - White blood cell count decreased [Recovered/Resolved]
  - Glucose urine present [Not Recovered/Not Resolved]
  - Pain [Recovered/Resolved]
  - Herpes zoster [Recovered/Resolved]
  - Blood glucose increased [Not Recovered/Not Resolved]
  - Fatigue [Recovered/Resolved]
  - Rash [Recovered/Resolved]
  - Lymphocyte count decreased [Recovered/Resolved]
  - Feeling hot [Recovered/Resolved]
  - Urine ketone body present [Recovered/Resolved]
  - Gastrointestinal tract irritation [Recovered/Resolved]

NARRATIVE: CASE EVENT DATE: 201801
